FAERS Safety Report 22074104 (Version 1)
Quarter: 2023Q1

REPORT INFORMATION
  Report Type: Spontaneous
  Country: US (occurrence: None)
  Receive Date: 20230307
  Receipt Date: 20230307
  Transmission Date: 20230418
  Serious: Yes (Disabling)
  Sender: FDA-Public Use
  Company Number: None

PATIENT
  Sex: Male
  Weight: 85.5 kg

DRUGS (1)
  1. FINASTERIDE [Suspect]
     Active Substance: FINASTERIDE
     Indication: Prostatomegaly
     Dosage: OTHER QUANTITY : 1 TABLET(S);?FREQUENCY : DAILY;?
     Route: 048

REACTIONS (8)
  - Drug hypersensitivity [None]
  - Genital discomfort [None]
  - Penile size reduced [None]
  - Painful erection [None]
  - Premature ejaculation [None]
  - Mental disorder [None]
  - Disturbance in social behaviour [None]
  - Pain [None]
